FAERS Safety Report 6436418 (Version 7)
Quarter: 2013Q2

REPORT INFORMATION
  Report Type: Report from Study
  Country: BR (occurrence: BR)
  Receive Date: 20071005
  Receipt Date: 20130610
  Transmission Date: 20140414
  Serious: Yes (Hospitalization, Other)
  Sender: FDA-Public Use
  Company Number: PHHO2005BR12057

PATIENT
  Age: 68 Year
  Sex: Female
  Weight: 90 kg

DRUGS (20)
  1. SOTALOL HYDROCHLORIDE [Concomitant]
     Indication: ARRHYTHMIA
     Dosage: UNK DF (1 TABLET IN MORNING AND HALF AT NIGHT), UNK
     Route: 048
     Dates: start: 201210
  2. VECASTEN [Concomitant]
     Indication: CARDIOVASCULAR DISORDER
     Dosage: 2 DF, DAILY
  3. NORIPURUM [Concomitant]
     Indication: ANAEMIA
     Dosage: 1 DF, DAILY
     Route: 048
  4. APRESOLIN [Suspect]
     Indication: HYPERTENSION
     Dosage: 1 DF, BID (MORNING AND NIGHT)
     Route: 048
     Dates: start: 20070907, end: 20070926
  5. FORASEQ [Suspect]
     Dosage: BID (MORNING AND NIGHT)
     Dates: start: 20070630
  6. DIOVAN HCT [Suspect]
     Indication: HYPERTENSION
     Dosage: 1 TABLET,(80 MG VAL, 12.5 MG OF HCT) 1 TABLET IN THE MORNING
     Route: 048
     Dates: start: 200507
  7. DIOVAN [Suspect]
     Indication: HYPERTENSION
     Dosage: 1 TABLET OF 80 MG VALSARTAN AT NIGHT
     Route: 048
     Dates: start: 200706
  8. ATENOLOL [Suspect]
     Indication: HYPERTENSION
     Dosage: 50 MG, UNK
  9. CAPILAREMA [Concomitant]
     Indication: CARDIOVASCULAR DISORDER
     Dosage: 1 DF, DAILY
     Route: 048
  10. B 12 [Concomitant]
     Dosage: 1 DF, EVERY MONTH
     Route: 030
  11. NATRILIX [Concomitant]
     Indication: HYPERTENSION
     Dates: end: 200507
  12. BLOPRESS [Concomitant]
     Indication: HYPERTENSION
     Dates: end: 200507
  13. SOTACOR [Concomitant]
     Indication: CARDIAC FIBRILLATION
     Dosage: UNK UKN (1 TABLET IN MORNING AND HALF AT NIGHT), UNK
     Route: 048
  14. SOTACOR [Concomitant]
     Indication: ARRHYTHMIA
  15. HIPERTIL [Concomitant]
     Indication: BLOOD PRESSURE
     Dosage: 1 TABLET (300 MG) OF CAPTOPRIL, DAILY
     Route: 048
  16. FRONTAL [Concomitant]
  17. MAREVAN [Concomitant]
     Indication: ANTICOAGULANT THERAPY
  18. SOMALGIN [Concomitant]
     Indication: ANTICOAGULANT THERAPY
     Dosage: ONE TABLET (100 MG) DAILY
     Route: 048
  19. BUFERIN [Concomitant]
  20. CAPTOPRIL [Concomitant]

REACTIONS (38)
  - Cardiac failure [Not Recovered/Not Resolved]
  - Hypertension [Not Recovered/Not Resolved]
  - Headache [Recovered/Resolved]
  - Malaise [Recovered/Resolved]
  - Atrial fibrillation [Not Recovered/Not Resolved]
  - Retinal detachment [Recovering/Resolving]
  - Blindness [Recovering/Resolving]
  - Chromatopsia [Recovered/Resolved]
  - Neck pain [Not Recovered/Not Resolved]
  - Arrhythmia [Not Recovered/Not Resolved]
  - Feeling abnormal [Not Recovered/Not Resolved]
  - Angina pectoris [Not Recovered/Not Resolved]
  - Tension [Not Recovered/Not Resolved]
  - Pneumonia [Recovered/Resolved]
  - Pyrexia [Not Recovered/Not Resolved]
  - White blood cell count increased [Not Recovered/Not Resolved]
  - Lymphocyte count increased [Not Recovered/Not Resolved]
  - Neutrophil count increased [Not Recovered/Not Resolved]
  - Lung disorder [Not Recovered/Not Resolved]
  - Nasopharyngitis [Not Recovered/Not Resolved]
  - Heart rate decreased [Recovered/Resolved]
  - Nervousness [Not Recovered/Not Resolved]
  - Cough [Not Recovered/Not Resolved]
  - Tachycardia [Not Recovered/Not Resolved]
  - Heart rate increased [Not Recovered/Not Resolved]
  - Sinus disorder [Not Recovered/Not Resolved]
  - Osteoarthritis [Not Recovered/Not Resolved]
  - Joint stiffness [Not Recovered/Not Resolved]
  - Vitamin B1 increased [Recovering/Resolving]
  - Rheumatic disorder [Not Recovered/Not Resolved]
  - Pain in extremity [Not Recovered/Not Resolved]
  - Confusional state [Unknown]
  - Haematoma [Not Recovered/Not Resolved]
  - Blood parathyroid hormone increased [Unknown]
  - C-reactive protein increased [Unknown]
  - Local swelling [Not Recovered/Not Resolved]
  - Blood creatinine increased [Unknown]
  - Blood urea increased [Unknown]
